FAERS Safety Report 13245075 (Version 1)
Quarter: 2017Q1

REPORT INFORMATION
  Report Type: Spontaneous
  Country: US (occurrence: US)
  Receive Date: 20170217
  Receipt Date: 20170217
  Transmission Date: 20170428
  Serious: No
  Sender: FDA-Public Use
  Company Number: US-GLAXOSMITHKLINE-US2017GSK021388

PATIENT
  Sex: Female

DRUGS (2)
  1. SPIRIVA [Concomitant]
     Active Substance: TIOTROPIUM BROMIDE MONOHYDRATE
     Dosage: UNK
  2. BREO ELLIPTA [Suspect]
     Active Substance: FLUTICASONE FUROATE\VILANTEROL TRIFENATATE
     Indication: PRODUCT USED FOR UNKNOWN INDICATION
     Dosage: UNK

REACTIONS (5)
  - Dyspnoea [Recovering/Resolving]
  - Treatment noncompliance [Recovered/Resolved]
  - Device use error [Recovered/Resolved]
  - Wrong technique in product usage process [Recovered/Resolved]
  - Inappropriate schedule of drug administration [Recovered/Resolved]
